FAERS Safety Report 8914101 (Version 3)
Quarter: 2012Q4

REPORT INFORMATION
  Report Type: Spontaneous
  Country: US (occurrence: None)
  Receive Date: 20121114
  Receipt Date: 20121114
  Transmission Date: 20130627
  Serious: Yes (Hospitalization)
  Sender: FDA-Public Use
  Company Number: US-LHC-2012036

PATIENT
  Age: 67 Year
  Sex: Male

DRUGS (1)
  1. CARBON DIOXIDE [Suspect]
     Indication: ANGIOGRAM

REACTIONS (3)
  - Sensory loss [None]
  - Motor dysfunction [None]
  - Paralysis [None]
